FAERS Safety Report 12985495 (Version 1)
Quarter: 2016Q4

REPORT INFORMATION
  Report Type: Spontaneous
  Country: US (occurrence: US)
  Receive Date: 20161130
  Receipt Date: 20161130
  Transmission Date: 20170207
  Serious: Yes (Hospitalization, Other)
  Sender: FDA-Public Use
  Company Number: US-TEVA-687466USA

PATIENT
  Age: 70 Year
  Sex: Male
  Weight: 116 kg

DRUGS (9)
  1. PREDNISONE. [Suspect]
     Active Substance: PREDNISONE
     Dosage: 20 MILLIGRAM DAILY;
     Route: 048
     Dates: start: 20150824, end: 20151003
  2. ALLEGRA ALLERGY [Concomitant]
     Active Substance: FEXOFENADINE HYDROCHLORIDE
     Route: 048
  3. CIPROFLOXACIN. [Concomitant]
     Active Substance: CIPROFLOXACIN
     Route: 048
     Dates: start: 20150619
  4. PREDNISONE. [Suspect]
     Active Substance: PREDNISONE
     Indication: EUSTACHIAN TUBE DYSFUNCTION
     Dosage: 20 MILLIGRAM DAILY;
     Route: 048
     Dates: start: 20150710, end: 20150724
  5. PREDNISONE. [Suspect]
     Active Substance: PREDNISONE
     Dosage: 20 MILLIGRAM DAILY;
     Route: 048
     Dates: start: 20160501, end: 20160514
  6. FISH OIL [Concomitant]
     Active Substance: FISH OIL
     Route: 048
  7. PHENAZOPYRIDINE. [Concomitant]
     Active Substance: PHENAZOPYRIDINE
     Route: 048
     Dates: start: 20150619
  8. TAMSULOSIN HCL [Concomitant]
     Active Substance: TAMSULOSIN
     Route: 048
     Dates: start: 20150619
  9. LORCASERIN(LORCASERIN) (BLINDED) [Suspect]
     Active Substance: LORCASERIN HYDROCHLORIDE
     Route: 048
     Dates: start: 20140924

REACTIONS (4)
  - Gastrointestinal haemorrhage [Recovered/Resolved]
  - Middle insomnia [None]
  - Gastritis [None]
  - Frequent bowel movements [None]

NARRATIVE: CASE EVENT DATE: 20160513
